FAERS Safety Report 20594628 (Version 1)
Quarter: 2022Q1

REPORT INFORMATION
  Report Type: Spontaneous
  Country: US (occurrence: None)
  Receive Date: 20220315
  Receipt Date: 20220315
  Transmission Date: 20220423
  Serious: No
  Sender: FDA-Public Use
  Company Number: US-ROCHE-2949570

PATIENT
  Sex: Male
  Weight: 90 kg

DRUGS (1)
  1. XOLAIR [Suspect]
     Active Substance: OMALIZUMAB
     Indication: Asthma
     Route: 058

REACTIONS (7)
  - Nasal congestion [Unknown]
  - Epistaxis [Unknown]
  - Nasal discharge discolouration [Unknown]
  - Nasal inflammation [Unknown]
  - Sleep apnoea syndrome [Unknown]
  - Insomnia [Unknown]
  - Pain [Unknown]
